FAERS Safety Report 4804052-6 (Version None)
Quarter: 2005Q4

REPORT INFORMATION
  Report Type: 
  Country: None (occurrence: None)
  Receive Date: 20051014
  Receipt Date: 20051001
  Transmission Date: 20060501
  Serious: Yes (Other)
  Sender: FDA-Public Use
  Company Number: 2005107960

PATIENT
  Sex: Female
  Weight: 62.5964 kg

DRUGS (4)
  1. CELEBREX [Suspect]
     Indication: OSTEOARTHRITIS
     Dosage: (, 2 IN 1 D), ORAL
     Route: 048
     Dates: start: 19990319
  2. TOPROL (METOPROLOL) [Concomitant]
  3. SYNTHROID [Concomitant]
  4. VITAMINS (VITAMINS) [Concomitant]

REACTIONS (3)
  - CARDIAC VALVE DISEASE [None]
  - DIFFICULTY IN WALKING [None]
  - DRUG INEFFECTIVE [None]
